FAERS Safety Report 13559180 (Version 1)
Quarter: 2017Q2

REPORT INFORMATION
  Report Type: Spontaneous
  Country: CA (occurrence: CA)
  Receive Date: 20170518
  Receipt Date: 20170518
  Transmission Date: 20170830
  Serious: Yes (Other)
  Sender: FDA-Public Use
  Company Number: CA-009507513-1705CAN008057

PATIENT
  Age: 31 Year
  Sex: Female

DRUGS (3)
  1. NASONEX [Suspect]
     Active Substance: MOMETASONE FUROATE
     Indication: SINUSITIS
     Dosage: 50.0 MICROGRAM, 2 EVERY 1 DAY(S)
     Route: 045
  2. BIAXIN [Concomitant]
     Active Substance: CLARITHROMYCIN
  3. NEILMED SINUS RINSE [Concomitant]
     Active Substance: SODIUM BICARBONATE\SODIUM CHLORIDE

REACTIONS (1)
  - Sensory loss [Recovering/Resolving]
